FAERS Safety Report 18832937 (Version 2)
Quarter: 2021Q2

REPORT INFORMATION
  Report Type: Spontaneous
  Country: JP (occurrence: JP)
  Receive Date: 20210201
  Receipt Date: 20210401
  Transmission Date: 20210717
  Serious: Yes (Other)
  Sender: FDA-Public Use
  Company Number: JP-CELLTRION INC.-2021JP000911

PATIENT

DRUGS (10)
  1. CYCLOPHOSPHAMIDE;EPIRUBICIN;FLUOROURACIL [Suspect]
     Active Substance: CYCLOPHOSPHAMIDE\EPIRUBICIN HYDROCHLORIDE\FLUOROURACIL
     Indication: HER2 POSITIVE BREAST CANCER
     Dosage: FLUOROURACIL, EPIRUBICIN, CYCLOPHOSPHAMIDE (FEC) AND PACLITAXEL PLUS TRASTUZUMAB
  2. PERTUZUMAB. [Suspect]
     Active Substance: PERTUZUMAB
     Dosage: REGIMEN WAS CHANGED TO PERTUZUMAB PLUS TRASTUZUMAB PLUS ERIBULIN (20 CYCLES)
  3. TRASTUZUMAB (UNKNOWN) [Suspect]
     Active Substance: TRASTUZUMAB
     Dosage: REGIMEN WAS CHANGED TO PERTUZUMAB PLUS TRASTUZUMAB PLUS ERIBULIN (20 CYCLES)
  4. TRASTUZUMAB (UNKNOWN) [Suspect]
     Active Substance: TRASTUZUMAB
     Indication: HER2 POSITIVE BREAST CANCER
     Dosage: FLUOROURACIL, EPIRUBICIN, CYCLOPHOSPHAMIDE (FEC) AND PACLITAXEL PLUS TRASTUZUMAB; COMPLETED 11 CYCLE
  5. TRASTUZUMAB (UNKNOWN) [Suspect]
     Active Substance: TRASTUZUMAB
     Dosage: REGIMEN WAS CHANGED TO PERTUZUMAB PLUS TRASTUZUMAB PLUS DOCETAXEL
  6. PACLITAXEL. [Suspect]
     Active Substance: PACLITAXEL
     Indication: HER2 POSITIVE BREAST CANCER
     Dosage: FLUOROURACIL, EPIRUBICIN, CYCLOPHOSPHAMIDE (FEC) AND PACLITAXEL PLUS TRASTUZUMAB
  7. PERTUZUMAB. [Suspect]
     Active Substance: PERTUZUMAB
     Indication: HER2 POSITIVE BREAST CANCER
     Dosage: REGIMEN WAS CHANGED TO PERTUZUMAB PLUS TRASTUZUMAB PLUS DOCETAXEL
  8. TRASTUZUMAB EMTANSINE [Suspect]
     Active Substance: ADO-TRASTUZUMAB EMTANSINE
     Indication: HER2 POSITIVE BREAST CANCER
     Dosage: NEXT LINE OF TREATMENT (5 CYCLES)
  9. ERIBULIN [Suspect]
     Active Substance: ERIBULIN
     Indication: HER2 POSITIVE BREAST CANCER
     Dosage: REGIMEN WAS CHANGED TO PERTUZUMAB PLUS TRASTUZUMAB PLUS ERIBULIN (20 CYCLES)
  10. DOCETAXEL. [Suspect]
     Active Substance: DOCETAXEL
     Indication: HER2 POSITIVE BREAST CANCER
     Dosage: REGIMEN WAS CHANGED TO PERTUZUMAB PLUS TRASTUZUMAB PLUS DOCETAXEL

REACTIONS (4)
  - Disease progression [Unknown]
  - Oedema peripheral [Unknown]
  - Therapy partial responder [Unknown]
  - Metastases to liver [Unknown]
